FAERS Safety Report 10384544 (Version 1)
Quarter: 2014Q3

REPORT INFORMATION
  Report Type: Spontaneous
  Country: US (occurrence: None)
  Receive Date: 20140813
  Receipt Date: 20140813
  Transmission Date: 20150326
  Serious: No
  Sender: FDA-Public Use
  Company Number: None

PATIENT
  Age: 78 Year
  Sex: Male
  Weight: 81.65 kg

DRUGS (11)
  1. SIMVASTATIN. [Suspect]
     Active Substance: SIMVASTATIN
  2. FINASTRENIDE [Concomitant]
  3. VITAMIN B12 [Concomitant]
     Active Substance: CYANOCOBALAMIN
  4. LOVASTATIN. [Suspect]
     Active Substance: LOVASTATIN
     Indication: BLOOD CHOLESTEROL
     Dosage: LOVASTATIN 10MG?VARIED WITH MED 1-2 PER DAT?DAILY BID?ORAL
     Route: 048
  5. NIACIN. [Suspect]
     Active Substance: NIACIN
  6. ATENOLOL. [Concomitant]
     Active Substance: ATENOLOL
  7. MULTIVITAMIN [Concomitant]
     Active Substance: VITAMINS
  8. MEVACOR [Suspect]
     Active Substance: LOVASTATIN
  9. TERAZODIN [Concomitant]
  10. ASPIRIN. [Concomitant]
     Active Substance: ASPIRIN
  11. FISH OIL [Concomitant]
     Active Substance: FISH OIL

REACTIONS (2)
  - Pain in extremity [None]
  - Myocardial infarction [None]
